FAERS Safety Report 8519314-9 (Version None)
Quarter: 2012Q3

REPORT INFORMATION
  Report Type: 
  Country: None (occurrence: None)
  Receive Date: 20120718
  Receipt Date: 20120712
  Transmission Date: 20120928
  Serious: Yes (Disabling, Other)
  Sender: FDA-Public Use
  Company Number: US-009507513-1207USA003731

PATIENT

DRUGS (2)
  1. FOSAMAX [Suspect]
     Indication: OSTEOPENIA
  2. FOSAMAX [Suspect]
     Indication: OSTEOPOROSIS
     Dosage: UNK
     Route: 048
     Dates: start: 19950101, end: 20100101

REACTIONS (4)
  - STRESS FRACTURE [None]
  - OSTEOPOROSIS [None]
  - BONE DENSITY DECREASED [None]
  - FEMUR FRACTURE [None]
